FAERS Safety Report 22045183 (Version 1)
Quarter: 2023Q1

REPORT INFORMATION
  Report Type: Spontaneous
  Country: AU (occurrence: AU)
  Receive Date: 20230228
  Receipt Date: 20230228
  Transmission Date: 20230418
  Serious: Yes (Other)
  Sender: FDA-Public Use
  Company Number: AU-TASMAN PHARMA, INC.-2023TSM00072

PATIENT
  Age: 56 Year
  Sex: Female

DRUGS (1)
  1. CLOZAPINE [Suspect]
     Active Substance: CLOZAPINE
     Dosage: 350 MG
     Dates: start: 20230104, end: 20230215

REACTIONS (1)
  - Palliative care [Not Recovered/Not Resolved]

NARRATIVE: CASE EVENT DATE: 20230215
